FAERS Safety Report 19472145 (Version 6)
Quarter: 2021Q3

REPORT INFORMATION
  Report Type: Report from Study
  Country: GB (occurrence: GB)
  Receive Date: 20210629
  Receipt Date: 20210824
  Transmission Date: 20211014
  Serious: Yes (Death, Other)
  Sender: FDA-Public Use
  Company Number: GB-ACCORD-229618

PATIENT
  Age: 55 Year
  Sex: Female

DRUGS (51)
  1. TRASTUZUMAB/EMTANSINE [Suspect]
     Active Substance: ADO-TRASTUZUMAB EMTANSINE
     Indication: BREAST CANCER
     Dosage: 240 MG, EVERY 3 WEEKS
     Route: 042
     Dates: start: 20190427, end: 20190606
  2. DOMPERIDONE [Concomitant]
     Active Substance: DOMPERIDONE
     Dosage: 10 MG FREQ:.33 D
     Route: 048
     Dates: start: 20170523
  3. METRONIDAZOLE. [Concomitant]
     Active Substance: METRONIDAZOLE
     Dosage: UNK
     Dates: start: 20200909, end: 20200914
  4. PARACETAMOL [Concomitant]
     Active Substance: ACETAMINOPHEN
     Dosage: 1 INTERNATIONAL UNIT
     Route: 048
     Dates: start: 20170525
  5. TRASTUZUMAB. [Suspect]
     Active Substance: TRASTUZUMAB
     Indication: PRODUCT USED FOR UNKNOWN INDICATION
     Dosage: 378 MG, EVERY 3 WEEKS
     Route: 042
     Dates: start: 20180516, end: 20190327
  6. AMITRIPTYLINE [Concomitant]
     Active Substance: AMITRIPTYLINE
     Indication: DEPRESSED MOOD
     Dosage: 5 MG, 1X/DAY
     Route: 048
     Dates: start: 20190827
  7. AMOXICILLIN. [Concomitant]
     Active Substance: AMOXICILLIN
     Indication: PYREXIA
  8. ARTIFICIAL SALIVA [Concomitant]
     Dosage: UNK, EVERY 0.25 DAY
     Route: 060
     Dates: start: 20170526
  9. APIXABAN [Concomitant]
     Active Substance: APIXABAN
     Dosage: 2.5 MG, 2X/DAY
     Route: 048
     Dates: start: 20190819, end: 20190917
  10. VANCOMYCIN [Concomitant]
     Active Substance: VANCOMYCIN
     Dosage: 125 MG, 4X/DAY
     Route: 048
     Dates: start: 20201030
  11. CARMELLOSE [Concomitant]
     Active Substance: CARBOXYMETHYLCELLULOSE
     Dosage: UNK, 4X/DAY
     Route: 060
     Dates: start: 20170526
  12. IKERVIS [Concomitant]
     Active Substance: CYCLOSPORINE
     Dosage: UNK
     Route: 047
     Dates: start: 201708
  13. LANSOPRAZOLE. [Concomitant]
     Active Substance: LANSOPRAZOLE
     Dosage: 30 MG, 1X/DAY
     Route: 048
     Dates: start: 20190730
  14. DERMOVATE [Concomitant]
     Active Substance: CLOBETASOL
     Indication: URTICARIA PAPULAR
     Dosage: 0.1 %, DAILY
  15. VANCOMYCIN [Concomitant]
     Active Substance: VANCOMYCIN
     Dosage: 500 MG
     Route: 048
     Dates: start: 20201104, end: 20201113
  16. PACLITAXEL/PACLITAXEL LIPOSOME [Suspect]
     Active Substance: PACLITAXEL
     Indication: PRODUCT USED FOR UNKNOWN INDICATION
     Dosage: 300 MILLIGRAM, Q3WK
     Route: 042
     Dates: start: 20170816
  17. DOMPERIDONE [Concomitant]
     Active Substance: DOMPERIDONE
     Dosage: FREQ:.33 D
     Route: 048
     Dates: start: 20170523
  18. TRASTUZUMAB. [Suspect]
     Active Substance: TRASTUZUMAB
     Indication: PRODUCT USED FOR UNKNOWN INDICATION
     Dosage: 400 MG, EVERY 3 WEEKS
     Route: 042
     Dates: start: 20170614, end: 20180425
  19. DOCETAXEL. [Suspect]
     Active Substance: DOCETAXEL
     Indication: BREAST CANCER
     Dosage: 130 MG, EVERY 3 WEEKS
     Route: 042
     Dates: start: 20170525, end: 20170525
  20. CLOBETASOL [Concomitant]
     Active Substance: CLOBETASOL
     Dosage: UNK UNK, 2X/DAY
     Route: 061
     Dates: start: 20170210
  21. METRONIDAZOLE. [Concomitant]
     Active Substance: METRONIDAZOLE
     Dosage: 400 MG, MONTHLY
     Route: 048
     Dates: start: 20201116, end: 202011
  22. CHLORPHENAMINE/CHLORPHENAMINE MALEATE/CHLORPHENAMINE RESINATE/CHLORPHENAMINE TANNATE [Concomitant]
     Active Substance: CHLORPHENIRAMINE
     Dosage: 4 MG FREQ:.25 D
     Route: 048
     Dates: start: 20170526
  23. TINZAPARIN/TINZAPARIN SODIUM [Concomitant]
     Active Substance: TINZAPARIN SODIUM
     Route: 058
     Dates: start: 20170713
  24. AMOXICILLIN. [Concomitant]
     Active Substance: AMOXICILLIN
     Indication: ABDOMINAL PAIN
     Dosage: 625 MG, 3X/DAY
     Route: 048
     Dates: start: 20201211, end: 20201216
  25. TINZAPARIN/TINZAPARIN SODIUM [Concomitant]
     Active Substance: TINZAPARIN SODIUM
     Dosage: 4500 IU, 1X/DAY
     Route: 058
     Dates: start: 20190918
  26. PACLITAXEL. [Suspect]
     Active Substance: PACLITAXEL
     Indication: HER2 POSITIVE BREAST CANCER
     Dosage: 450 MG, EVERY 3 WEEKS
     Dates: start: 20170614, end: 20170614
  27. TRASTUZUMAB/EMTANSINE [Suspect]
     Active Substance: ADO-TRASTUZUMAB EMTANSINE
     Indication: BREAST CANCER
     Dosage: 240 MG, EVERY 3 WEEKS
     Route: 042
     Dates: start: 20190829, end: 20200326
  28. TRASTUZUMAB. [Suspect]
     Active Substance: TRASTUZUMAB
     Indication: BREAST CANCER
     Dosage: 525 MILLIGRAM, LOADING DOSE
     Route: 042
     Dates: start: 20170524, end: 20170524
  29. TRASTUZUMAB. [Suspect]
     Active Substance: TRASTUZUMAB
     Indication: PRODUCT USED FOR UNKNOWN INDICATION
     Dosage: 378 MG, EVERY 3 WEEKS
     Route: 042
     Dates: start: 20180516
  30. APIXABAN [Concomitant]
     Active Substance: APIXABAN
     Dosage: FREQ:.5 D
     Route: 048
     Dates: start: 20190819, end: 20190917
  31. CALCIUM CARBONATE/COLECALCIFEROL [Concomitant]
     Active Substance: CALCIUM CARBONATE\CHOLECALCIFEROL
     Dosage: UNK UNK, 3X/DAY
     Route: 048
     Dates: start: 20170525
  32. PACLITAXEL/PACLITAXEL LIPOSOME [Suspect]
     Active Substance: PACLITAXEL
     Indication: PRODUCT USED FOR UNKNOWN INDICATION
     Dosage: 300 MG, EVERY 3 WEEKS
     Route: 042
     Dates: start: 20170816, end: 20170906
  33. CHLORHEXIDINE [Concomitant]
     Active Substance: CHLORHEXIDINE
     Dosage: FREQ:.25 D
     Route: 061
     Dates: start: 20170525
  34. TRASTUZUMAB/EMTANSINE [Suspect]
     Active Substance: ADO-TRASTUZUMAB EMTANSINE
     Dosage: 160 MG, EVERY 3 WEEKS
     Route: 042
     Dates: start: 20190627, end: 20190718
  35. PACLITAXEL. [Suspect]
     Active Substance: PACLITAXEL
     Indication: HER2 POSITIVE BREAST CANCER
     Dosage: 375 MG, EVERY 3 WEEKS
     Dates: start: 20170705, end: 20170726
  36. SANDO K [Concomitant]
     Dosage: UNK, BID,FREQ: .5 DAY
     Dates: start: 20170525
  37. TRANEXAMIC ACID. [Concomitant]
     Active Substance: TRANEXAMIC ACID
     Dosage: UNK
     Dates: start: 20190722
  38. ZOLEDRONIC ACID [Concomitant]
     Active Substance: ZOLEDRONIC ACID
     Dosage: 4 MILLIGRAM, EVERY3?4 WEEKS
     Route: 042
     Dates: start: 20170525
  39. CETIRIZINE [Concomitant]
     Active Substance: CETIRIZINE HYDROCHLORIDE
     Dosage: 10 MG, 1X/DAY
     Route: 048
     Dates: start: 20190313
  40. CHLORHEXIDINE [Concomitant]
     Active Substance: CHLORHEXIDINE
     Dosage: 10 ML FREQ:.25 D
     Route: 061
     Dates: start: 20170525
  41. CHLORPHENAMINE/CHLORPHENAMINE MALEATE/CHLORPHENAMINE RESINATE/CHLORPHENAMINE TANNATE [Concomitant]
     Active Substance: CHLORPHENIRAMINE
     Dosage: 4 MG FREQ:.25 D
     Route: 048
     Dates: start: 20170526
  42. LOPERAMIDE [Concomitant]
     Active Substance: LOPERAMIDE
     Dosage: PRN (ASNEEDED)
     Route: 048
     Dates: start: 20170613
  43. TINZAPARIN/TINZAPARIN SODIUM [Concomitant]
     Active Substance: TINZAPARIN SODIUM
     Dosage: 12000 IU DAILY
     Route: 058
     Dates: start: 20170713
  44. CAPECITABINE. [Suspect]
     Active Substance: CAPECITABINE
     Indication: BREAST CANCER
     Dosage: 1300 MILLIGRAM
     Route: 048
     Dates: start: 20201020
  45. PACLITAXEL/PACLITAXEL LIPOSOME [Suspect]
     Active Substance: PACLITAXEL
     Indication: BREAST CANCER
     Dosage: 375 MG, EVERY 3 WEEK
     Route: 042
     Dates: start: 20170705, end: 20170726
  46. PERTUZUMAB. [Suspect]
     Active Substance: PERTUZUMAB
     Indication: PRODUCT USED FOR UNKNOWN INDICATION
     Dosage: 420 MILLIGRAM, Q3WK,LOADING DOSE
     Route: 042
     Dates: start: 20170614, end: 20190327
  47. DIETHANOLAMINE FUSIDATE/FUSIDATE SODIUM/FUSIDIC ACID [Concomitant]
     Active Substance: DIETHANOLAMINE FUSIDATE\FUSIDATE SODIUM\FUSIDIC ACID
     Dosage: UNK
     Dates: start: 201905
  48. PERTUZUMAB. [Suspect]
     Active Substance: PERTUZUMAB
     Indication: BREAST CANCER
     Dosage: 840 MILLIGRAM, LOADING DOSE
     Route: 042
     Dates: start: 20170524, end: 20170524
  49. PACLITAXEL/PACLITAXEL LIPOSOME [Suspect]
     Active Substance: PACLITAXEL
     Indication: BREAST CANCER
     Dosage: 450 MG, EVERY 3 WEEKS
     Route: 042
     Dates: start: 20170614, end: 20170614
  50. TRASTUZUMAB/EMTANSINE [Suspect]
     Active Substance: ADO-TRASTUZUMAB EMTANSINE
     Indication: BREAST CANCER
     Dosage: 200 MG, EVERY 3 WEEKS
     Route: 042
  51. PACLITAXEL. [Suspect]
     Active Substance: PACLITAXEL
     Indication: HER2 POSITIVE BREAST CANCER
     Dosage: 300 MG, EVERY 3 WEEKS, DISCONTINUED AS PLANNED NUMBER OF CYCLES WERE?COMPLETED
     Dates: start: 20170816, end: 20170906

REACTIONS (6)
  - Sinus tachycardia [Unknown]
  - Neoplasm progression [Fatal]
  - Device related infection [Recovered/Resolved]
  - Biliary sepsis [Recovered/Resolved]
  - Tenosynovitis [Recovered/Resolved]
  - Epistaxis [Not Recovered/Not Resolved]

NARRATIVE: CASE EVENT DATE: 201904
